FAERS Safety Report 5797159-0 (Version None)
Quarter: 2008Q3

REPORT INFORMATION
  Report Type: 
  Country: None (occurrence: None)
  Receive Date: 20080701
  Receipt Date: 20080623
  Transmission Date: 20090109
  Serious: Yes (Other)
  Sender: FDA-Public Use
  Company Number: US-GENENTECH-263324

PATIENT
  Sex: Female

DRUGS (1)
  1. RITUXAN [Suspect]
     Indication: AUTOIMMUNE DISORDER
     Dates: start: 20070101

REACTIONS (1)
  - LIVER FUNCTION TEST ABNORMAL [None]
